FAERS Safety Report 6060597-5 (Version None)
Quarter: 2009Q1

REPORT INFORMATION
  Report Type: 
  Country: None (occurrence: None)
  Receive Date: 20090130
  Receipt Date: 20090130
  Transmission Date: 20090719
  Serious: Yes (Other)
  Sender: FDA-Public Use
  Company Number: None

PATIENT
  Sex: Female

DRUGS (7)
  1. HUMIRA [Suspect]
     Indication: CROHN'S DISEASE
     Dosage: 40MG EVERY OTHER WEEK SQ
     Route: 058
     Dates: start: 20080808
  2. HUMIRA [Suspect]
     Indication: CROHN'S DISEASE
     Dosage: 40MG EVERY OTHER WEEK SQ
     Route: 058
     Dates: start: 20090126
  3. CLONAZEPAM [Concomitant]
  4. PROGESTERONE IN OIL [Concomitant]
  5. BENICAR [Concomitant]
  6. NEXIUM [Concomitant]
  7. LEXAPRO [Concomitant]

REACTIONS (4)
  - FATIGUE [None]
  - PAIN [None]
  - SERUM SICKNESS [None]
  - UNEVALUABLE EVENT [None]
